FAERS Safety Report 26012105 (Version 1)
Quarter: 2025Q4

REPORT INFORMATION
  Report Type: Spontaneous
  Country: US (occurrence: None)
  Receive Date: 20251107
  Receipt Date: 20251107
  Transmission Date: 20260118
  Serious: Yes (Hospitalization)
  Sender: FDA-CTU
  Company Number: None

PATIENT
  Age: 45 Year
  Sex: Male

DRUGS (1)
  1. DUPIXENT [Suspect]
     Active Substance: DUPILUMAB
     Dosage: OTHER FREQUENCY : EVERY 2 WEEKS;?
     Route: 058

REACTIONS (3)
  - Chest pain [None]
  - Cardiomegaly [None]
  - Cardiac valve disease [None]

NARRATIVE: CASE EVENT DATE: 20251106
